FAERS Safety Report 7061311-7 (Version None)
Quarter: 2010Q4

REPORT INFORMATION
  Report Type: 
  Country: None (occurrence: None)
  Receive Date: 20101026
  Receipt Date: 20101013
  Transmission Date: 20110411
  Serious: Yes (Other)
  Sender: FDA-Public Use
  Company Number: SE-JNJFOC-20101004678

PATIENT
  Age: 78 Year
  Sex: Male

DRUGS (1)
  1. HALDOL [Suspect]
     Indication: PRODUCT USED FOR UNKNOWN INDICATION
     Route: 065

REACTIONS (5)
  - BLUNTED AFFECT [None]
  - COGNITIVE DISORDER [None]
  - FEELING ABNORMAL [None]
  - INDIFFERENCE [None]
  - SOMNOLENCE [None]
